FAERS Safety Report 8142083-1 (Version None)
Quarter: 2012Q1

REPORT INFORMATION
  Report Type: 
  Country: None (occurrence: None)
  Receive Date: 20120216
  Receipt Date: 20120203
  Transmission Date: 20120608
  Serious: Yes (Death, Hospitalization)
  Sender: FDA-Public Use
  Company Number: US-ACTELION-A-NJ2011-54818

PATIENT

DRUGS (7)
  1. EPOPROSTENOL SODIUM [Suspect]
     Indication: PULMONARY ARTERIAL HYPERTENSION
     Dosage: 17.4 NG/KG, PER MIN
     Route: 041
     Dates: start: 20110706, end: 20111218
  2. REVATIO [Concomitant]
  3. TRACLEER [Suspect]
     Indication: PULMONARY ARTERIAL HYPERTENSION
     Dosage: UNK
     Route: 048
     Dates: start: 20060206, end: 20111218
  4. VENTAVIS [Concomitant]
     Indication: PULMONARY ARTERIAL HYPERTENSION
     Dosage: UNK
     Route: 055
     Dates: start: 20100415
  5. DIGOXIN [Concomitant]
  6. LASIX [Concomitant]
  7. COUMADIN [Concomitant]

REACTIONS (16)
  - ACUTE RIGHT VENTRICULAR FAILURE [None]
  - OEDEMA PERIPHERAL [None]
  - DYSURIA [None]
  - DYSPNOEA [None]
  - FLUID RETENTION [None]
  - RENAL FAILURE ACUTE [None]
  - WEIGHT INCREASED [None]
  - MALAISE [None]
  - ABDOMINAL PAIN UPPER [None]
  - PAIN [None]
  - DISEASE PROGRESSION [None]
  - SWELLING [None]
  - OEDEMA [None]
  - HAEMODIALYSIS [None]
  - ATRIAL FLUTTER [None]
  - PULMONARY HYPERTENSION [None]
